FAERS Safety Report 13691667 (Version 7)
Quarter: 2017Q4

REPORT INFORMATION
  Report Type: Report from Study
  Country: US (occurrence: US)
  Receive Date: 20170626
  Receipt Date: 20171207
  Transmission Date: 20180320
  Serious: Yes (Hospitalization, Disabling)
  Sender: FDA-Public Use
  Company Number: US-ACTELION-A-NJ2017-155426

PATIENT
  Age: 66 Year
  Sex: Female
  Weight: 111.11 kg

DRUGS (9)
  1. VENTAVIS [Suspect]
     Active Substance: ILOPROST
     Indication: PULMONARY ARTERIAL HYPERTENSION
     Dosage: 5 MCG 6 TO 9 TIMES PER DAY
     Route: 055
     Dates: start: 2014
  2. CARVEDILOL. [Concomitant]
     Active Substance: CARVEDILOL
     Dosage: 3.125 MG, BID
  3. HYDROXYCHLOROQUINE [Concomitant]
     Active Substance: HYDROXYCHLOROQUINE
     Dosage: 200 MG, BID
  4. PANTOPRAZOLE [Concomitant]
     Active Substance: PANTOPRAZOLE
     Dosage: 40 MG, QAM
  5. ADEMPAS [Concomitant]
     Active Substance: RIOCIGUAT
     Dosage: 2.5 MG, TID
  6. SYMBICORT [Concomitant]
     Active Substance: BUDESONIDE\FORMOTEROL FUMARATE DIHYDRATE
     Dosage: 60.5 MG, UNK
     Dates: start: 2013
  7. SYMBICORT [Concomitant]
     Active Substance: BUDESONIDE\FORMOTEROL FUMARATE DIHYDRATE
     Dosage: 80.45 MG, UNK
  8. OPSUMIT [Suspect]
     Active Substance: MACITENTAN
     Indication: PULMONARY ARTERIAL HYPERTENSION
     Dosage: 10 MG, QD
     Route: 048
     Dates: start: 20170530
  9. XARELTO [Concomitant]
     Active Substance: RIVAROXABAN
     Dosage: 15 MG, UNK

REACTIONS (27)
  - Oxygen saturation decreased [Not Recovered/Not Resolved]
  - Dizziness [Unknown]
  - Sinusitis [Unknown]
  - Pulmonary embolism [Unknown]
  - Respiratory tract congestion [Recovering/Resolving]
  - Pleural effusion [Unknown]
  - Joint swelling [Unknown]
  - Asthenia [Unknown]
  - Incorrect dose administered [Unknown]
  - Pulmonary oedema [Unknown]
  - Condition aggravated [Not Recovered/Not Resolved]
  - Depression [Not Recovered/Not Resolved]
  - Pneumonia [Unknown]
  - Dyspepsia [Unknown]
  - Presyncope [Recovering/Resolving]
  - Therapy non-responder [Unknown]
  - Cholecystitis [Recovering/Resolving]
  - Abdominal pain upper [Recovering/Resolving]
  - Pericardial effusion [Unknown]
  - Dyspnoea [Unknown]
  - Haemorrhage [Unknown]
  - Irritable bowel syndrome [Not Recovered/Not Resolved]
  - Fatigue [Unknown]
  - Fluid retention [Unknown]
  - Blood pressure decreased [Unknown]
  - Constipation [Unknown]
  - Chills [Unknown]

NARRATIVE: CASE EVENT DATE: 2015
